FAERS Safety Report 7058009-8 (Version None)
Quarter: 2010Q4

REPORT INFORMATION
  Report Type: 
  Country: None (occurrence: None)
  Receive Date: 20101022
  Receipt Date: 20101014
  Transmission Date: 20110411
  Serious: Yes (Other)
  Sender: FDA-Public Use
  Company Number: PHHY2010US61143

PATIENT
  Sex: Female

DRUGS (2)
  1. EXTAVIA [Suspect]
     Indication: MULTIPLE SCLEROSIS
     Dosage: 0.1875 MG, QOD
     Route: 058
     Dates: start: 20100816, end: 20100908
  2. XANAX [Concomitant]
     Indication: ANXIETY
     Dosage: 0.5 MG, PRN
     Route: 048

REACTIONS (5)
  - FEELING ABNORMAL [None]
  - HYPOAESTHESIA FACIAL [None]
  - MALAISE [None]
  - PAIN [None]
  - PAIN IN JAW [None]
